FAERS Safety Report 6048451-6 (Version None)
Quarter: 2009Q1

REPORT INFORMATION
  Report Type: 
  Country: None (occurrence: None)
  Receive Date: 20090123
  Receipt Date: 20090116
  Transmission Date: 20090719
  Serious: Yes (Hospitalization)
  Sender: FDA-Public Use
  Company Number: A0764667A

PATIENT
  Age: 60 Year
  Sex: Male
  Weight: 84.1 kg

DRUGS (2)
  1. AVANDIA [Suspect]
     Indication: DRUG USE FOR UNKNOWN INDICATION
     Dosage: 4MG SINGLE DOSE
     Route: 048
     Dates: start: 20050101, end: 20070101
  2. ACTOS [Concomitant]
     Dates: end: 20060501

REACTIONS (2)
  - MYOCARDIAL INFARCTION [None]
  - PAIN [None]
